FAERS Safety Report 6678918-9 (Version None)
Quarter: 2010Q2

REPORT INFORMATION
  Report Type: 
  Country: None (occurrence: None)
  Receive Date: 20100402
  Receipt Date: 20020524
  Transmission Date: 20101027
  Serious: Yes (Hospitalization)
  Sender: FDA-Public Use
  Company Number: 23100144

PATIENT

DRUGS (1)
  1. ARGATROBAN [Suspect]
     Indication: HEPARIN-INDUCED THROMBOCYTOPENIA

REACTIONS (1)
  - COAGULATION TIME PROLONGED [None]
